FAERS Safety Report 13543087 (Version 1)
Quarter: 2017Q2

REPORT INFORMATION
  Report Type: Spontaneous
  Country: US (occurrence: US)
  Receive Date: 20170512
  Receipt Date: 20170512
  Transmission Date: 20170830
  Serious: Yes (Other)
  Sender: FDA-Public Use
  Company Number: None

PATIENT
  Age: 33 Year
  Sex: Male
  Weight: 166.02 kg

DRUGS (1)
  1. ENBREL [Suspect]
     Active Substance: ETANERCEPT
     Indication: PSORIATIC ARTHROPATHY
     Dosage: DOSE - 50MG/ML?FREQUENCY - ONCE WEEKLY SUB Q INJECTION
     Route: 058

REACTIONS (4)
  - Device malfunction [None]
  - Back pain [None]
  - Coccydynia [None]
  - Neck pain [None]

NARRATIVE: CASE EVENT DATE: 20170511
